FAERS Safety Report 17004270 (Version 1)
Quarter: 2019Q4

REPORT INFORMATION
  Report Type: Spontaneous
  Country: US (occurrence: US)
  Receive Date: 20191107
  Receipt Date: 20191107
  Transmission Date: 20200122
  Serious: Yes (Other)
  Sender: FDA-Public Use
  Company Number: US-PFIZER INC-2019478077

PATIENT
  Age: 52 Year
  Sex: Female
  Weight: 56.69 kg

DRUGS (3)
  1. ESCITALOPRAM [ESCITALOPRAM OXALATE] [Concomitant]
     Active Substance: ESCITALOPRAM OXALATE
     Indication: ANXIETY
     Dosage: 20 MG, UNK
  2. BOSULIF [Suspect]
     Active Substance: BOSUTINIB MONOHYDRATE
     Indication: CHRONIC MYELOMONOCYTIC LEUKAEMIA
     Dosage: 400 MG, 1X/DAY
     Route: 048
  3. OXYCODONE [OXYCODONE HYDROCHLORIDE] [Concomitant]
     Active Substance: OXYCODONE HYDROCHLORIDE
     Indication: PAIN
     Dosage: 10 MG, UNK

REACTIONS (6)
  - Dysstasia [Recovering/Resolving]
  - Vomiting [Unknown]
  - Malaise [Unknown]
  - Blood count abnormal [Unknown]
  - Suicidal ideation [Unknown]
  - Fatigue [Unknown]
